FAERS Safety Report 8027899-4 (Version None)
Quarter: 2012Q1

REPORT INFORMATION
  Report Type: 
  Country: None (occurrence: None)
  Receive Date: 20120106
  Receipt Date: 20120105
  Transmission Date: 20120608
  Serious: No
  Sender: FDA-Public Use
  Company Number: US-PFIZER INC-2012004017

PATIENT
  Sex: Female
  Weight: 63.5 kg

DRUGS (5)
  1. CHANTIX [Suspect]
     Dosage: 0.5 MG, DAILY
     Dates: start: 20111205, end: 20111201
  2. LOTREL [Concomitant]
     Indication: HYPERTENSION
     Dosage: 10/20 MG, DAILY
  3. CHANTIX [Suspect]
     Indication: SMOKING CESSATION THERAPY
     Dosage: UNK
  4. AMBIEN [Suspect]
     Indication: SLEEP DISORDER
     Dosage: UNK
  5. CHANTIX [Suspect]
     Dosage: UNK
     Dates: start: 20111201

REACTIONS (4)
  - MALAISE [None]
  - ABNORMAL DREAMS [None]
  - VOMITING [None]
  - DECREASED APPETITE [None]
